FAERS Safety Report 17165823 (Version 3)
Quarter: 2020Q1

REPORT INFORMATION
  Report Type: Report from Study
  Country: US (occurrence: US)
  Receive Date: 20191217
  Receipt Date: 20200328
  Transmission Date: 20200409
  Serious: Yes (Hospitalization)
  Sender: FDA-Public Use
  Company Number: US-AMGEN-USANI2019202728

PATIENT
  Age: 30 Year
  Sex: Female
  Weight: 51.45 kg

DRUGS (15)
  1. CARBOPLATIN. [Concomitant]
     Active Substance: CARBOPLATIN
     Dosage: 619-725 MILLIGRAM
     Route: 042
     Dates: start: 20190905, end: 20191125
  2. CAFFEINE. [Concomitant]
     Active Substance: CAFFEINE
     Dosage: 40 MILLIGRAM
     Route: 048
     Dates: start: 20191003
  3. TRAMADOL. [Concomitant]
     Active Substance: TRAMADOL
     Dosage: 50 MILLIGRAM
     Route: 048
     Dates: start: 20191003
  4. TRASTUZUMAB. [Concomitant]
     Active Substance: TRASTUZUMAB
     Dosage: 300-411 MILLIGRAM
     Route: 042
     Dates: start: 20190905, end: 20191125
  5. HYDROCODONE [Concomitant]
     Active Substance: HYDROCODONE
     Dosage: 325 MILLIGRAM
     Route: 048
     Dates: start: 20190725
  6. ACETAMINOPHEN;BUTALBITAL [Concomitant]
     Active Substance: ACETAMINOPHEN\BUTALBITAL
     Dosage: 50 MILLIGRAM
     Route: 048
     Dates: start: 20191003
  7. DOCETAXEL. [Concomitant]
     Active Substance: DOCETAXEL
     Dosage: 111 MILLIGRAM
     Route: 042
     Dates: start: 20190905, end: 20191125
  8. PERTUZUMAB. [Concomitant]
     Active Substance: PERTUZUMAB
     Dosage: 420-840 MILLIGRAM
     Route: 042
     Dates: start: 20190905, end: 20191125
  9. DEXAMETHASONE. [Concomitant]
     Active Substance: DEXAMETHASONE
     Dosage: 8 MILLIGRAM
     Route: 048
     Dates: start: 20190829
  10. PEGFILGRASTIM [Suspect]
     Active Substance: PEGFILGRASTIM
     Indication: NEUTROPENIA
     Dosage: 6 MILLIGRAM
     Route: 058
     Dates: start: 20190906
  11. KLOR-CON [Concomitant]
     Active Substance: POTASSIUM CHLORIDE
     Dosage: 20 MILLIEQUIVALENT
     Route: 048
     Dates: start: 20190903, end: 20190908
  12. SERTRALINE [Concomitant]
     Active Substance: SERTRALINE HYDROCHLORIDE
     Dosage: 50 MILLIGRAM
     Route: 048
     Dates: start: 2018
  13. LOMOTIL [LOPERAMIDE HYDROCHLORIDE] [Concomitant]
     Dosage: 2.5 MILLIGRAM
     Route: 048
     Dates: start: 20191003
  14. COMPAZINE [Concomitant]
     Active Substance: PROCHLORPERAZINE MALEATE
     Dosage: 10 MILLIGRAM
     Route: 048
     Dates: start: 20190829
  15. OLANZAPINE. [Concomitant]
     Active Substance: OLANZAPINE
     Dosage: 2.5 MILLIGRAM
     Route: 048
     Dates: start: 20190829

REACTIONS (2)
  - Neutropenia [Recovered/Resolved]
  - Pyrexia [Recovered/Resolved]

NARRATIVE: CASE EVENT DATE: 20191130
